FAERS Safety Report 7775318-5 (Version None)
Quarter: 2011Q3

REPORT INFORMATION
  Report Type: 
  Country: None (occurrence: None)
  Receive Date: 20110921
  Receipt Date: 20110906
  Transmission Date: 20111222
  Serious: Yes (Other)
  Sender: FDA-Public Use
  Company Number: 2011P1007000

PATIENT
  Age: 67 Year
  Sex: Female
  Weight: 66.6788 kg

DRUGS (17)
  1. KAYLOIC [Concomitant]
  2. MULTI-VITAMIN [Concomitant]
  3. IBUPROFEN [Concomitant]
  4. VITAMIN D [Concomitant]
  5. FEXOFENADINE [Concomitant]
  6. PAXIL [Concomitant]
  7. VITAMIN B COMPLEX WITH C AND IRON [Concomitant]
  8. FOSAMAX [Concomitant]
  9. FISH OIL [Concomitant]
  10. WARFARIN SODIUM [Suspect]
     Indication: COAGULOPATHY
     Dosage: 5;3.75 MG, PO 6 MG SL
     Route: 048
     Dates: start: 20110526, end: 20110531
  11. CLORAZEPATE DIPOTASSIUM [Concomitant]
  12. VITAMIN E [Concomitant]
  13. ASPIRIN [Concomitant]
  14. ZANTAC [Concomitant]
  15. KEPPRA [Concomitant]
  16. CALCIUM CARBONATE [Concomitant]
  17. GLUCOSAMINE CHONDROITIN [Concomitant]

REACTIONS (3)
  - BLEEDING TIME PROLONGED [None]
  - INTERNATIONAL NORMALISED RATIO INCREASED [None]
  - TONGUE BITING [None]
